FAERS Safety Report 9104342 (Version 1)
Quarter: 2013Q1

REPORT INFORMATION
  Report Type: Spontaneous
  Country: FR (occurrence: FR)
  Receive Date: 20130219
  Receipt Date: 20130219
  Transmission Date: 20140127
  Serious: Yes (Hospitalization, Other)
  Sender: FDA-Public Use
  Company Number: FR-TEVA-386723ISR

PATIENT
  Age: 44 Year
  Sex: Male

DRUGS (9)
  1. VINCRISTINE [Suspect]
     Indication: LYMPHOMA
     Dosage: 6 MILLIGRAM DAILY;
     Route: 042
     Dates: start: 20121012, end: 20121029
  2. METHOTREXATE TEVA [Suspect]
     Indication: LYMPHOMA
     Dosage: 45 MILLIGRAM DAILY;
     Route: 037
     Dates: start: 20121008, end: 20121022
  3. ENDOXAN [Suspect]
     Indication: LYMPHOMA
     Dosage: 3000 MILLIGRAM DAILY;
     Route: 042
     Dates: start: 20121012, end: 20121029
  4. KIDROLASE [Suspect]
     Indication: LYMPHOMA
     Dosage: 36000 IU (INTERNATIONAL UNIT) DAILY;
     Route: 042
     Dates: start: 20121022, end: 20121029
  5. ARACYTINE [Suspect]
     Indication: LYMPHOMA
     Dosage: 80 MILLIGRAM DAILY;
     Route: 037
     Dates: start: 20121015, end: 20121022
  6. METHYLPREDNISOLONE [Suspect]
     Indication: LYMPHOMA
     Dosage: 80 MILLIGRAM DAILY;
     Route: 037
     Dates: start: 20121015, end: 20121022
  7. CERUBIDINE [Suspect]
     Indication: LYMPHOMA
     Dosage: 300 MILLIGRAM DAILY;
     Route: 042
     Dates: start: 20121016, end: 20121022
  8. ACUPAN [Concomitant]
     Route: 065
  9. TOPALGIC [Concomitant]
     Route: 065

REACTIONS (5)
  - Cerebral venous thrombosis [Recovering/Resolving]
  - Superior sagittal sinus thrombosis [Unknown]
  - Headache [Recovering/Resolving]
  - Deep vein thrombosis [Unknown]
  - Paraesthesia [Unknown]
